FAERS Safety Report 13384907 (Version 6)
Quarter: 2017Q2

REPORT INFORMATION
  Report Type: Spontaneous
  Country: US (occurrence: US)
  Receive Date: 20170329
  Receipt Date: 20170613
  Transmission Date: 20170830
  Serious: Yes (Hospitalization)
  Sender: FDA-Public Use
  Company Number: US-PFIZER INC-2017132920

PATIENT
  Age: 79 Year
  Sex: Female
  Weight: 91.17 kg

DRUGS (25)
  1. LYRICA [Suspect]
     Active Substance: PREGABALIN
     Indication: NEUROPATHY PERIPHERAL
     Dosage: 75 MG, 1X/DAY (ONCE AT NIGHT 25 + 50 MG]
     Dates: start: 2016
  2. LASIX [Concomitant]
     Active Substance: FUROSEMIDE
     Dosage: 40 MG, DAILY
  3. METOLAZONE. [Concomitant]
     Active Substance: METOLAZONE
     Indication: WEIGHT INCREASED
     Dosage: 2.5 MG, AS NEEDED
     Route: 048
  4. NOVOLIN N [Concomitant]
     Active Substance: INSULIN HUMAN
     Dosage: 40 IU, UNK, (BED ONLY)
     Route: 058
  5. LYRICA [Suspect]
     Active Substance: PREGABALIN
     Dosage: 75 MG, 1X/DAY (IN THE EVENING INTERNALLY MONITORED)
  6. LYRICA [Suspect]
     Active Substance: PREGABALIN
     Dosage: 225 MG, 1X/DAY, (150 MG AND 75 MG ONCE A DAY)
  7. COUMADIN [Concomitant]
     Active Substance: WARFARIN SODIUM
     Dosage: 5 MG, DAILY
     Route: 048
  8. PERFOROMIST [Concomitant]
     Active Substance: FORMOTEROL FUMARATE DIHYDRATE
     Dosage: UNK UNK, AS NEEDED, ((20 MCG/2 ML))
  9. COLCHICINE. [Concomitant]
     Active Substance: COLCHICINE
     Indication: GOUT
     Dosage: 0.6 MG, AS NEEDED
  10. DOXYCYCLINE HYCLATE. [Concomitant]
     Active Substance: DOXYCYCLINE HYCLATE
     Dosage: 100 MG, DAILY
     Route: 048
  11. LYRICA [Suspect]
     Active Substance: PREGABALIN
     Dosage: 50 MG, DAILY (EXTERNALLY MONITORED, EVENING)
     Route: 048
  12. SPIRONOLACTONE. [Concomitant]
     Active Substance: SPIRONOLACTONE
     Dosage: 25 MG, DAILY
     Route: 048
  13. VALIUM [Concomitant]
     Active Substance: DIAZEPAM
     Dosage: 5 MG, DAILY
     Route: 048
  14. SIMETHICONE (DIMETHICONE) [Concomitant]
     Active Substance: DIMETHICONE
     Dosage: 180 MG, AS NEEDED
  15. BUDESONIDE. [Concomitant]
     Active Substance: BUDESONIDE
     Dosage: UNK, AS NEEDED
  16. NOVOLOG [Concomitant]
     Active Substance: INSULIN ASPART
     Route: 058
  17. SIMVASTATIN. [Concomitant]
     Active Substance: SIMVASTATIN
     Dosage: 20 MG, DAILY
     Route: 048
  18. SOTALOL. [Concomitant]
     Active Substance: SOTALOL
     Dosage: 120 MG, 2X/DAY, (80 MG TABLET, 1.5 TWICE DAILY )
     Route: 048
     Dates: start: 2016
  19. LYRICA [Suspect]
     Active Substance: PREGABALIN
     Indication: NEURALGIA
     Dosage: 125 MG, 1X/DAY (50 MG + 75 MG AT NIGHT)
     Route: 048
  20. LYRICA [Suspect]
     Active Substance: PREGABALIN
     Dosage: 125 MG, 1X/DAY (50 MG + 75 MG AT NIGHT)
     Route: 048
  21. SOTALOL. [Concomitant]
     Active Substance: SOTALOL
     Dosage: 120 MG, UNK
  22. COUMADIN [Concomitant]
     Active Substance: WARFARIN SODIUM
     Dosage: 5 MG ON ONLY 1/2 TABLET TUE-SUN
  23. LOSARTAN. [Concomitant]
     Active Substance: LOSARTAN
     Dosage: 12.5 MG, DAILY, (25 MG, 1/2 TAB)
  24. SIMVASTATIN. [Concomitant]
     Active Substance: SIMVASTATIN
     Dosage: 25 MG, UNK
  25. PROAIR HFA [Concomitant]
     Active Substance: ALBUTEROL SULFATE
     Dosage: UNK, AS NEEDED, (90 MCG/ACTUATION AEROSOL INHALER)
     Route: 055

REACTIONS (7)
  - Sinus disorder [Recovered/Resolved]
  - Drug effect incomplete [Unknown]
  - Incorrect product storage [Unknown]
  - Oropharyngeal pain [Recovered/Resolved]
  - Arthralgia [Unknown]
  - Pain in extremity [Recovered/Resolved]
  - Viral upper respiratory tract infection [Recovering/Resolving]

NARRATIVE: CASE EVENT DATE: 201705
